FAERS Safety Report 9281697 (Version 2)
Quarter: 2013Q2

REPORT INFORMATION
  Report Type: Spontaneous
  Country: US (occurrence: US)
  Receive Date: 20130509
  Receipt Date: 20130611
  Transmission Date: 20140414
  Serious: Yes (Hospitalization, Other)
  Sender: FDA-Public Use
  Company Number: US-AMGEN-USASP2013030924

PATIENT
  Age: 22 Year
  Sex: Male

DRUGS (1)
  1. ARANESP [Suspect]
     Indication: RENAL FAILURE CHRONIC
     Dosage: 2.17 MUG/KG, QWK

REACTIONS (7)
  - Gun shot wound [Unknown]
  - Anaemia [Unknown]
  - Haemorrhage [Unknown]
  - Infection [Unknown]
  - Fistula [Unknown]
  - Inflammation [Unknown]
  - Drug ineffective [Unknown]
